FAERS Safety Report 20170919 (Version 1)
Quarter: 2021Q4

REPORT INFORMATION
  Report Type: Spontaneous
  Country: CN (occurrence: CN)
  Receive Date: 20211210
  Receipt Date: 20211210
  Transmission Date: 20220303
  Serious: Yes (Hospitalization)
  Sender: FDA-Public Use
  Company Number: CN-BAXTER-2021BAX038823

PATIENT
  Age: 56 Year
  Sex: Female
  Weight: 57 kg

DRUGS (8)
  1. CYCLOPHOSPHAMIDE [Suspect]
     Active Substance: CYCLOPHOSPHAMIDE
     Indication: Diffuse large B-cell lymphoma
     Dosage: 1ST,2ND,3RD,4TH CYCLES OF CHEMOTHERAPY
     Route: 041
  2. CYCLOPHOSPHAMIDE [Suspect]
     Active Substance: CYCLOPHOSPHAMIDE
     Dosage: 0.9% SODIUM CHLORIDE INJECTION 100ML + CYCLOPHOSPHAMIDE FOR INJECTION 1000MG D1; Q21D
     Route: 041
     Dates: start: 20211115, end: 20211115
  3. SODIUM CHLORIDE [Suspect]
     Active Substance: SODIUM CHLORIDE
     Indication: Medication dilution
     Dosage: 1ST,2ND,3RD,4TH CYCLES OF CHEMOTHERAPY (DILUTION FOR CYCLOPHOSPHAMIDE)
     Route: 041
  4. SODIUM CHLORIDE [Suspect]
     Active Substance: SODIUM CHLORIDE
     Dosage: 0.9% SODIUM CHLORIDE INJECTION 100ML + CYCLOPHOSPHAMIDE FOR INJECTION 1000MG IV GTT ST D1; Q21D
     Route: 041
     Dates: start: 20211115, end: 20211115
  5. SODIUM CHLORIDE [Suspect]
     Active Substance: SODIUM CHLORIDE
     Dosage: 1ST,2ND,3RD,4TH CYCLES OF CHEMOTHERAPY (DILUTION FOR ETOPOSIDE)
     Route: 041
  6. SODIUM CHLORIDE [Suspect]
     Active Substance: SODIUM CHLORIDE
     Dosage: 0.9% SODIUM CHLORIDE INJECTION 500ML + ETOPOSIDE INJECTION 100MG INTRAVENOUS DRIP D1-4; Q21D
     Route: 041
     Dates: start: 20211115, end: 20211115
  7. ETOPOSIDE [Suspect]
     Active Substance: ETOPOSIDE
     Indication: Diffuse large B-cell lymphoma
     Dosage: 1ST,2ND,3RD,4TH CYCLES OF CHEMOTHERAPY
     Route: 041
  8. ETOPOSIDE [Suspect]
     Active Substance: ETOPOSIDE
     Dosage: 0.9% SODIUM CHLORIDE INJECTION 500ML + ETOPOSIDE INJECTION 100MG INTRAVENOUS DRIP D1-4; Q21D
     Route: 041
     Dates: start: 20211115, end: 20211115

REACTIONS (1)
  - Myelosuppression [Recovered/Resolved]

NARRATIVE: CASE EVENT DATE: 20211119
